FAERS Safety Report 18076513 (Version 2)
Quarter: 2020Q4

REPORT INFORMATION
  Report Type: Spontaneous
  Country: US (occurrence: US)
  Receive Date: 20200728
  Receipt Date: 20201008
  Transmission Date: 20210113
  Serious: Yes (Other)
  Sender: FDA-Public Use
  Company Number: US-ROCHE-2647895

PATIENT
  Sex: Female
  Weight: 99.88 kg

DRUGS (2)
  1. XOLAIR [Suspect]
     Active Substance: OMALIZUMAB
     Indication: IDIOPATHIC URTICARIA
     Dosage: ONGOING-UNKNOWN
     Route: 058
     Dates: start: 20200617
  2. NUVARING [Concomitant]
     Active Substance: ETHINYL ESTRADIOL\ETONOGESTREL
     Dosage: ONGOING-UNKNOWN
     Route: 067
     Dates: start: 20200611

REACTIONS (1)
  - Hernia [Not Recovered/Not Resolved]
